FAERS Safety Report 9904199 (Version 1)
Quarter: 2014Q1

REPORT INFORMATION
  Report Type: Report from Study
  Country: NL (occurrence: NL)
  Receive Date: 20140218
  Receipt Date: 20140218
  Transmission Date: 20141002
  Serious: Yes (Other)
  Sender: FDA-Public Use
  Company Number: NL-ROCHE-1348798

PATIENT
  Sex: Male

DRUGS (1)
  1. PEGASYS [Suspect]
     Indication: PRODUCT USED FOR UNKNOWN INDICATION
     Route: 058
     Dates: start: 2005, end: 2006

REACTIONS (5)
  - Thrombosis [Unknown]
  - Pyrexia [Unknown]
  - Myalgia [Unknown]
  - Confusional state [Unknown]
  - Painful respiration [Unknown]
